FAERS Safety Report 17216467 (Version 1)
Quarter: 2019Q4

REPORT INFORMATION
  Report Type: Spontaneous
  Country: FR (occurrence: FR)
  Receive Date: 20191230
  Receipt Date: 20191230
  Transmission Date: 20200122
  Serious: Yes (Hospitalization, Other)
  Sender: FDA-Public Use
  Company Number: FR-AUROBINDO-AUR-APL-2019-108031

PATIENT
  Age: 52 Year
  Sex: Male

DRUGS (4)
  1. ALDACTONE [Interacting]
     Active Substance: SPIRONOLACTONE
     Indication: ASCITES
     Dosage: 150 MILLIGRAM, ONCE A DAY
     Route: 048
     Dates: end: 20191126
  2. OLANZAPINE. [Interacting]
     Active Substance: OLANZAPINE
     Indication: SCHIZOPHRENIA
     Dosage: 10 MILLIGRAM, ONCE A DAY
     Route: 048
     Dates: end: 20191115
  3. CLOZAPINE. [Suspect]
     Active Substance: CLOZAPINE
     Indication: SCHIZOPHRENIA
     Dosage: 200 MILLIGRAM, ONCE A DAY
     Route: 048
     Dates: start: 20191108, end: 20191126
  4. PROPRANOLOL [Interacting]
     Active Substance: PROPRANOLOL HYDROCHLORIDE
     Indication: VARICES OESOPHAGEAL
     Dosage: 160 MILLIGRAM, ONCE A DAY
     Route: 048
     Dates: end: 20191126

REACTIONS (4)
  - Transaminases increased [Recovered/Resolved]
  - Hypotension [Recovered/Resolved]
  - Hypothermia [Recovering/Resolving]
  - Drug interaction [Recovered/Resolved]

NARRATIVE: CASE EVENT DATE: 20191126
